FAERS Safety Report 23313610 (Version 2)
Quarter: 2024Q1

REPORT INFORMATION
  Report Type: Spontaneous
  Country: US (occurrence: US)
  Receive Date: 20231219
  Receipt Date: 20240311
  Transmission Date: 20240410
  Serious: Yes (Other)
  Sender: FDA-Public Use
  Company Number: US-TEVA-VS-3135881

PATIENT
  Age: 61 Year
  Sex: Female

DRUGS (2)
  1. MORPHINE [Suspect]
     Active Substance: MORPHINE
     Indication: Chest pain
     Route: 065
  2. THYROTROPIN ALFA [Suspect]
     Active Substance: THYROTROPIN ALFA
     Indication: Radioactive iodine therapy
     Dosage: PATIENTS RECEIVED TWO DOSES.
     Route: 065

REACTIONS (4)
  - Chest pain [Recovering/Resolving]
  - Metastases to lung [Unknown]
  - Drug ineffective [Unknown]
  - Metastases to bone [Unknown]
